FAERS Safety Report 16642421 (Version 1)
Quarter: 2019Q3

REPORT INFORMATION
  Report Type: Spontaneous
  Country: US (occurrence: US)
  Receive Date: 20190614
  Receipt Date: 20190614
  Transmission Date: 20191004
  Serious: Yes (Hospitalization)
  Sender: FDA-Public Use
  Company Number: None

PATIENT
  Age: 73 Year
  Sex: Male
  Weight: 100.7 kg

DRUGS (2)
  1. CAPECITABINE. [Suspect]
     Active Substance: CAPECITABINE
     Indication: COLON CANCER
     Route: 048
     Dates: start: 20190215, end: 20190310
  2. CAPECITABINE. [Suspect]
     Active Substance: CAPECITABINE
     Indication: COLON CANCER
     Route: 042
     Dates: start: 20190215, end: 20190215

REACTIONS (6)
  - Diarrhoea [None]
  - Nausea [None]
  - Fatigue [None]
  - Vomiting [None]
  - Neuropathy peripheral [None]
  - Abdominal pain [None]

NARRATIVE: CASE EVENT DATE: 20190307
